FAERS Safety Report 25314823 (Version 2)
Quarter: 2025Q3

REPORT INFORMATION
  Report Type: Spontaneous
  Country: US (occurrence: US)
  Receive Date: 20250514
  Receipt Date: 20250801
  Transmission Date: 20251020
  Serious: Yes (Other)
  Sender: PFIZER
  Company Number: US-PFIZER INC-PV202500056960

PATIENT
  Age: 68 Year
  Sex: Male

DRUGS (27)
  1. HYDROXYZINE PAMOATE [Suspect]
     Active Substance: HYDROXYZINE PAMOATE
     Dosage: 25 MG, DAILY
     Route: 065
  2. HYDROXYZINE PAMOATE [Suspect]
     Active Substance: HYDROXYZINE PAMOATE
     Route: 065
  3. AYVAKIT [Suspect]
     Active Substance: AVAPRITINIB
     Indication: Indolent systemic mastocytosis
     Dosage: EVERY OTHER DAY
  4. AYVAKIT [Suspect]
     Active Substance: AVAPRITINIB
     Dosage: 12.5 MILLIGRAMS (25 MILLIGRAM(S), 1 IN 2 DAY)
     Dates: start: 202408
  5. AYVAKIT [Suspect]
     Active Substance: AVAPRITINIB
     Dosage: 12.5 MILLIGRAMS (25 MILLIGRAM(S), 1 IN 2 DAY)
     Dates: start: 20240923
  6. AYVAKIT [Suspect]
     Active Substance: AVAPRITINIB
     Dosage: 25 MG, 1X/DAY
     Route: 048
     Dates: start: 20240923
  7. PROCHLORPERAZINE MALEATE [Suspect]
     Active Substance: PROCHLORPERAZINE MALEATE
     Dosage: 10 MG, DAILY
     Route: 048
  8. BETAMETHASONE DIPROPIONATE [Concomitant]
     Active Substance: BETAMETHASONE DIPROPIONATE
     Dosage: 0.05 %, DAILY (EXTERNAL)
     Route: 065
  9. CICLOPIROX [Concomitant]
     Active Substance: CICLOPIROX
     Route: 065
  10. COLACE [Concomitant]
     Active Substance: DOCUSATE SODIUM
     Dosage: 100 MG, DAILY
     Route: 065
  11. EMMA [Concomitant]
     Route: 065
  12. GLUCOSAMINE CHONDROITIN ADVANCED [Concomitant]
     Route: 065
  13. PROGESTERONE [Concomitant]
     Active Substance: PROGESTERONE
     Dosage: 6 MG, DAILY
     Route: 065
  14. METOCLOPRAMIDE HYDROCHLORIDE [Concomitant]
     Active Substance: METOCLOPRAMIDE HYDROCHLORIDE
     Dosage: 10 MG, DAILY
     Route: 065
  15. METOPROLOL SUCCINATE [Concomitant]
     Active Substance: METOPROLOL SUCCINATE
     Dosage: 50 MG, DAILY
     Route: 065
  16. MUPIROCIN [Concomitant]
     Active Substance: MUPIROCIN
     Dosage: 2 %, DAILY (EXTERNAL)
     Route: 065
  17. ONDANSETRON HYDROCHLORIDE [Concomitant]
     Active Substance: ONDANSETRON HYDROCHLORIDE
     Dosage: 4 MG, DAILY
     Route: 048
  18. PANTOPRAZOLE SODIUM [Concomitant]
     Active Substance: PANTOPRAZOLE SODIUM
     Dosage: 20 MG, DAILY
     Route: 048
  19. POLYETHYLENE GLYCOL 3350 [Concomitant]
     Active Substance: POLYETHYLENE GLYCOL 3350
     Route: 065
  20. SUCRALFATE [Concomitant]
     Active Substance: SUCRALFATE
     Dosage: 1 G, DAILY
     Route: 065
  21. TRIAMCINOLONE ACETONIDE [Concomitant]
     Active Substance: TRIAMCINOLONE ACETONIDE
     Dosage: 0.1 %, DAILY (EXTERNAL)
     Route: 065
  22. ZEAXANTHIN [Concomitant]
     Active Substance: ZEAXANTHIN
     Route: 065
  23. BISACODYL [Concomitant]
     Active Substance: BISACODYL
     Route: 065
  24. MIRALAX [Concomitant]
     Active Substance: POLYETHYLENE GLYCOL 3350
     Route: 065
  25. DOXYCYCLINE [Concomitant]
     Active Substance: DOXYCYCLINE
     Route: 065
  26. LINZESS [Concomitant]
     Active Substance: LINACLOTIDE
     Route: 065
  27. CLINDAMYCIN [Concomitant]
     Active Substance: CLINDAMYCIN
     Route: 065

REACTIONS (11)
  - Hallucination [Not Recovered/Not Resolved]
  - Delusion [Not Recovered/Not Resolved]
  - Illness [Not Recovered/Not Resolved]
  - Memory impairment [Not Recovered/Not Resolved]
  - Dry mouth [Not Recovered/Not Resolved]
  - Rash [Not Recovered/Not Resolved]
  - Photosensitivity reaction [Not Recovered/Not Resolved]
  - Nausea [Not Recovered/Not Resolved]
  - Constipation [Not Recovered/Not Resolved]
  - Folliculitis [Not Recovered/Not Resolved]
  - Neurodermatitis [Not Recovered/Not Resolved]
